FAERS Safety Report 7972986 (Version 2)
Quarter: 2014Q2

REPORT INFORMATION
  Report Type: Spontaneous
  Country: US (occurrence: US)
  Receive Date: 20110603
  Receipt Date: 20140422
  Transmission Date: 20141212
  Serious: Yes (Hospitalization)
  Sender: FDA-Public Use
  Company Number: US-BAYER-2010-003180

PATIENT
  Age: 25 Year
  Sex: Female
  Weight: 56.69 kg

DRUGS (4)
  1. YAZ [Suspect]
     Indication: PRODUCT USED FOR UNKNOWN INDICATION
     Dosage: UNK
     Route: 048
     Dates: start: 200703
  2. YASMIN [Suspect]
  3. IBUPROFEN [Concomitant]
     Dosage: UNK
     Dates: start: 200908
  4. ADVIL [Concomitant]
     Dosage: UNK
     Dates: start: 200908

REACTIONS (4)
  - Cerebrovascular accident [None]
  - Transverse sinus thrombosis [None]
  - Cerebral venous thrombosis [None]
  - Thalamic infarction [None]
